FAERS Safety Report 7669339-0 (Version None)
Quarter: 2011Q3

REPORT INFORMATION
  Report Type: 
  Country: None (occurrence: None)
  Receive Date: 20110808
  Receipt Date: 20110727
  Transmission Date: 20111222
  Serious: Yes (Other)
  Sender: FDA-Public Use
  Company Number: US-ROCHE-774859

PATIENT
  Sex: Female
  Weight: 46.7 kg

DRUGS (1)
  1. ACCUTANE [Suspect]
     Route: 065
     Dates: start: 19991201, end: 20000530

REACTIONS (11)
  - IRRITABLE BOWEL SYNDROME [None]
  - INFLAMMATORY BOWEL DISEASE [None]
  - ANAEMIA [None]
  - CROHN'S DISEASE [None]
  - DEPRESSION [None]
  - LIP DRY [None]
  - ANXIETY [None]
  - COLITIS ULCERATIVE [None]
  - EPISTAXIS [None]
  - BIPOLAR DISORDER [None]
  - INSOMNIA [None]
